FAERS Safety Report 23306326 (Version 3)
Quarter: 2024Q1

REPORT INFORMATION
  Report Type: Report from Study
  Country: US (occurrence: US)
  Receive Date: 20231218
  Receipt Date: 20240319
  Transmission Date: 20240409
  Serious: Yes (Other)
  Sender: FDA-Public Use
  Company Number: US-BEIGENE-BGN-2023-014997

PATIENT

DRUGS (6)
  1. BRUKINSA [Suspect]
     Active Substance: ZANUBRUTINIB
     Indication: Waldenstrom^s macroglobulinaemia
     Dosage: 160 MILLIGRAM
     Route: 048
     Dates: start: 20231206
  2. BRUKINSA [Suspect]
     Active Substance: ZANUBRUTINIB
     Dosage: 160 MILLIGRAM
     Route: 048
  3. AMLODIPINE [Concomitant]
     Active Substance: AMLODIPINE BESYLATE
     Dosage: 5 MILLIGRAM
  4. TRAMADOL [Concomitant]
     Active Substance: TRAMADOL\TRAMADOL HYDROCHLORIDE
     Dosage: UNK
  5. TIZANIDINE [Concomitant]
     Active Substance: TIZANIDINE
     Dosage: UNK
  6. ASPIRIN [Concomitant]
     Active Substance: ASPIRIN
     Indication: Platelet count increased
     Dosage: 81 MILLIGRAM

REACTIONS (8)
  - Traumatic haematoma [Not Recovered/Not Resolved]
  - Sternal fracture [Recovering/Resolving]
  - Heart rate increased [Not Recovered/Not Resolved]
  - Patella fracture [Recovering/Resolving]
  - Foot fracture [Recovering/Resolving]
  - Abdominal pain upper [Recovering/Resolving]
  - Road traffic accident [Unknown]
  - Dizziness [Not Recovered/Not Resolved]
